FAERS Safety Report 6294362-0 (Version None)
Quarter: 2009Q3

REPORT INFORMATION
  Report Type: 
  Country: None (occurrence: None)
  Receive Date: 20090803
  Receipt Date: 20090720
  Transmission Date: 20100115
  Serious: Yes (Other)
  Sender: FDA-Public Use
  Company Number: BR-PFIZER INC-2009242992

PATIENT
  Age: 24 Year

DRUGS (4)
  1. FRONTAL XR [Suspect]
     Indication: DEPRESSION
     Dosage: 0.5 MG, 1X/DAY
     Dates: start: 20090605, end: 20090717
  2. TRILEPTAL [Concomitant]
     Dosage: 300 MG, UNK
     Dates: start: 20090605
  3. BUPROPION [Concomitant]
     Dosage: UNK
     Dates: start: 20090605
  4. DORMONID [Concomitant]
     Dosage: 15 ML, UNK
     Dates: start: 20090605

REACTIONS (4)
  - GAIT DISTURBANCE [None]
  - HYPERHIDROSIS [None]
  - PAIN IN EXTREMITY [None]
  - TREMOR [None]
